FAERS Safety Report 7145493-4 (Version None)
Quarter: 2010Q4

REPORT INFORMATION
  Report Type: 
  Country: None (occurrence: None)
  Receive Date: 20101208
  Receipt Date: 20101206
  Transmission Date: 20110411
  Serious: Yes (Life-Threatening, Hospitalization, Other)
  Sender: FDA-Public Use
  Company Number: NL-ROXANE LABORATORIES, INC.-2010-DE-04246GD

PATIENT
  Age: 43 Year
  Sex: Female

DRUGS (2)
  1. SERTRALINE HYDROCHLORIDE [Suspect]
     Indication: DEPRESSION
     Dosage: 100 MG
  2. INDOMETHACIN [Suspect]
     Indication: MUSCULOSKELETAL PAIN
     Dosage: 150 MG

REACTIONS (14)
  - CARDIAC ARREST [None]
  - CHILLS [None]
  - COMA [None]
  - DIARRHOEA [None]
  - DRUG INTERACTION [None]
  - EXTENSOR PLANTAR RESPONSE [None]
  - HEADACHE [None]
  - METABOLIC ACIDOSIS [None]
  - MUSCULOSKELETAL PAIN [None]
  - MYDRIASIS [None]
  - MYOCARDIAL INFARCTION [None]
  - RHABDOMYOLYSIS [None]
  - SEROTONIN SYNDROME [None]
  - VOMITING [None]
